FAERS Safety Report 12847569 (Version 2)
Quarter: 2016Q4

REPORT INFORMATION
  Report Type: Spontaneous
  Country: US (occurrence: US)
  Receive Date: 20161014
  Receipt Date: 20161220
  Transmission Date: 20170207
  Serious: No
  Sender: FDA-Public Use
  Company Number: US-JNJFOC-20161004192

PATIENT
  Sex: Female
  Weight: 63.5 kg

DRUGS (1)
  1. ELMIRON [Suspect]
     Active Substance: PENTOSAN POLYSULFATE SODIUM
     Indication: CYSTITIS INTERSTITIAL
     Route: 048
     Dates: start: 2013

REACTIONS (3)
  - Decreased appetite [Not Recovered/Not Resolved]
  - Condition aggravated [Not Recovered/Not Resolved]
  - Malaise [Not Recovered/Not Resolved]

NARRATIVE: CASE EVENT DATE: 2013
